FAERS Safety Report 5414311-4 (Version None)
Quarter: 2007Q3

REPORT INFORMATION
  Report Type: 
  Country: None (occurrence: None)
  Receive Date: 20070814
  Receipt Date: 20070806
  Transmission Date: 20080115
  Serious: Yes (Hospitalization)
  Sender: FDA-Public Use
  Company Number: IT-PFIZER INC-2007065419

PATIENT
  Sex: Male
  Weight: 66 kg

DRUGS (6)
  1. SU-011,248 [Suspect]
     Indication: RENAL CELL CARCINOMA STAGE UNSPECIFIED
     Route: 048
  2. FLUCONAZOLE [Concomitant]
     Route: 042
     Dates: start: 20070628, end: 20070630
  3. LEVOFLOXACIN [Concomitant]
     Route: 042
     Dates: start: 20070628, end: 20070710
  4. I.V. SOLUTIONS [Concomitant]
     Route: 042
     Dates: start: 20070628, end: 20070713
  5. HEPARIN [Concomitant]
     Route: 042
  6. METRONIDAZOLE [Concomitant]
     Route: 042
     Dates: start: 20070628, end: 20070710

REACTIONS (2)
  - INFECTION [None]
  - PYREXIA [None]
